FAERS Safety Report 9416643 (Version 2)
Quarter: 2013Q3

REPORT INFORMATION
  Report Type: Spontaneous
  Country: ES (occurrence: None)
  Receive Date: 20130719
  Receipt Date: 20130903
  Transmission Date: 20140515
  Serious: Yes (Hospitalization, Other)
  Sender: FDA-Public Use
  Company Number: 2013ES0294

PATIENT
  Age: 79 Year
  Sex: Male

DRUGS (2)
  1. ANAKINRA [Suspect]
     Indication: GOUT
     Dosage: 14.2557 MG (100 MG, 1 IN 1 WK), SUBCUTANEOUS
     Route: 058
     Dates: start: 20101215, end: 20110615
  2. ANAKINRA [Suspect]
     Indication: INFLAMMATION
     Dosage: 14.2557 MG (100 MG, 1 IN 1 WK), SUBCUTANEOUS
     Route: 058
     Dates: start: 20101215, end: 20110615

REACTIONS (1)
  - Cardiac failure [None]
